FAERS Safety Report 8326207-9 (Version None)
Quarter: 2012Q2

REPORT INFORMATION
  Report Type: 
  Country: None (occurrence: None)
  Receive Date: 20120501
  Receipt Date: 20100623
  Transmission Date: 20120825
  Serious: No
  Sender: FDA-Public Use
  Company Number: US-TEVA-2010003397

PATIENT
  Age: 53 Year
  Sex: Male
  Weight: 92.162 kg

DRUGS (2)
  1. NUVIGIL [Suspect]
     Route: 048
  2. NUVIGIL [Suspect]
     Route: 048

REACTIONS (7)
  - MIGRAINE [None]
  - BLOOD PRESSURE INCREASED [None]
  - PALPITATIONS [None]
  - NAUSEA [None]
  - SINUS HEADACHE [None]
  - TREMOR [None]
  - INTENTIONAL DRUG MISUSE [None]
